FAERS Safety Report 11205653 (Version 1)
Quarter: 2015Q2

REPORT INFORMATION
  Report Type: Spontaneous
  Country: US (occurrence: US)
  Receive Date: 20150622
  Receipt Date: 20150622
  Transmission Date: 20150821
  Serious: Yes (Death, Other)
  Sender: FDA-Public Use
  Company Number: US-BAYER-2015-353349

PATIENT
  Sex: Female

DRUGS (1)
  1. ALKA-SELTZER ORIGINAL [Suspect]
     Active Substance: ANHYDROUS CITRIC ACID\ASPIRIN\SODIUM BICARBONATE
     Indication: HYPERCHLORHYDRIA
     Dosage: UNK, UNK

REACTIONS (3)
  - Intentional product misuse [None]
  - Death [Fatal]
  - Gastric ulcer [Unknown]
